FAERS Safety Report 23523612 (Version 1)
Quarter: 2024Q1

REPORT INFORMATION
  Report Type: Spontaneous
  Country: IT (occurrence: IT)
  Receive Date: 20240214
  Receipt Date: 20240214
  Transmission Date: 20240409
  Serious: Yes (Other)
  Sender: FDA-Public Use
  Company Number: None

PATIENT
  Age: 55 Year
  Sex: Female

DRUGS (3)
  1. XANAX [Suspect]
     Active Substance: ALPRAZOLAM
     Indication: Product used for unknown indication
     Dosage: 2 GRAM
     Route: 048
     Dates: start: 20240131
  2. CLARITHROMYCIN [Suspect]
     Active Substance: CLARITHROMYCIN
     Indication: Product used for unknown indication
     Dosage: 500 MILLIGRAM
     Route: 048
     Dates: start: 20240131
  3. DEURSIL [Suspect]
     Active Substance: URSODIOL
     Indication: Product used for unknown indication
     Dosage: 9 GRAM
     Route: 048
     Dates: start: 20240131

REACTIONS (4)
  - Abdominal pain upper [Recovering/Resolving]
  - Intentional self-injury [Unknown]
  - Confusional state [Recovering/Resolving]
  - Substance abuse [Recovering/Resolving]

NARRATIVE: CASE EVENT DATE: 20240131
